FAERS Safety Report 23743128 (Version 3)
Quarter: 2024Q2

REPORT INFORMATION
  Report Type: Spontaneous
  Country: CZ (occurrence: CZ)
  Receive Date: 20240415
  Receipt Date: 20240506
  Transmission Date: 20240715
  Serious: Yes (Life-Threatening, Hospitalization, Other)
  Sender: FDA-Public Use
  Company Number: CZ-002147023-NVSC2024CZ078263

PATIENT
  Sex: Female

DRUGS (5)
  1. GILENYA [Suspect]
     Active Substance: FINGOLIMOD HYDROCHLORIDE
     Indication: Relapsing-remitting multiple sclerosis
     Dosage: 0.5 MG, QD
     Route: 048
     Dates: start: 20210610, end: 20240222
  2. VIGANTOL [Concomitant]
     Indication: Product used for unknown indication
     Dosage: 2000 IU
     Route: 065
  3. SUMATRIPTAN [Concomitant]
     Active Substance: SUMATRIPTAN
     Indication: Product used for unknown indication
     Dosage: 50 MG (AS NEEDED )
     Route: 065
  4. ACYCLOVIR [Concomitant]
     Active Substance: ACYCLOVIR
     Indication: Product used for unknown indication
     Dosage: 200 MG, TID
     Route: 065
  5. CITALOPRAM [Concomitant]
     Active Substance: CITALOPRAM\CITALOPRAM HYDROBROMIDE
     Indication: Product used for unknown indication
     Dosage: 20 MG, QD
     Route: 065

REACTIONS (13)
  - Polyneuropathy [Recovered/Resolved with Sequelae]
  - Encephalomyelitis [Unknown]
  - Meningitis [Unknown]
  - Radiculopathy [Unknown]
  - Thoracic vertebral fracture [Unknown]
  - Depression [Unknown]
  - Nervous system disorder [Unknown]
  - Urogenital infection bacterial [Unknown]
  - Pleocytosis [Unknown]
  - Varicella zoster virus infection [Unknown]
  - COVID-19 [Recovered/Resolved]
  - Post herpetic neuralgia [Unknown]
  - Musculoskeletal pain [Unknown]

NARRATIVE: CASE EVENT DATE: 20231222
